FAERS Safety Report 19714317 (Version 1)
Quarter: 2021Q3

REPORT INFORMATION
  Report Type: Spontaneous
  Country: US (occurrence: US)
  Receive Date: 20210818
  Receipt Date: 20210818
  Transmission Date: 20211014
  Serious: No
  Sender: FDA-Public Use
  Company Number: None

PATIENT
  Age: 30 Year
  Sex: Male
  Weight: 94.5 kg

DRUGS (2)
  1. CYMBALTA [Suspect]
     Active Substance: DULOXETINE HYDROCHLORIDE
     Indication: DEPRESSION
  2. OTC NSAIDS (TYLENOL, MOTRIN, ADVIL) PRN [Concomitant]

REACTIONS (6)
  - Nausea [None]
  - Headache [None]
  - Diarrhoea [None]
  - Mood swings [None]
  - Electric shock sensation [None]
  - Withdrawal syndrome [None]

NARRATIVE: CASE EVENT DATE: 20210301
